FAERS Safety Report 9140776 (Version 1)
Quarter: 2013Q1

REPORT INFORMATION
  Report Type: Report from Study
  Country: US (occurrence: US)
  Receive Date: 20130305
  Receipt Date: 20130305
  Transmission Date: 20140127
  Serious: Yes (Hospitalization)
  Sender: FDA-Public Use
  Company Number: US-JNJFOC-20130216820

PATIENT
  Age: 14 Year
  Sex: Female
  Weight: 46.6 kg

DRUGS (3)
  1. REMICADE [Suspect]
     Indication: INFLAMMATORY BOWEL DISEASE
     Route: 042
     Dates: start: 20040310
  2. TACROLIMUS [Concomitant]
  3. DEPO-PROVERA [Concomitant]

REACTIONS (1)
  - Viral infection [Recovered/Resolved]
